FAERS Safety Report 24214258 (Version 1)
Quarter: 2024Q3

REPORT INFORMATION
  Report Type: Spontaneous
  Country: RO (occurrence: RO)
  Receive Date: 20240815
  Receipt Date: 20240815
  Transmission Date: 20241016
  Serious: Yes (Life-Threatening, Other)
  Sender: BRISTOL MYERS SQUIBB
  Company Number: RO-BRISTOL-MYERS SQUIBB COMPANY-2024-126895

PATIENT
  Age: 60 Year
  Sex: Male

DRUGS (5)
  1. OPDIVO [Suspect]
     Active Substance: NIVOLUMAB
     Indication: Clear cell renal cell carcinoma
     Dosage: DOSE : 4;     FREQ : UNAVAILABLE
     Dates: start: 202206, end: 202208
  2. OPDIVO [Suspect]
     Active Substance: NIVOLUMAB
     Dates: start: 202208, end: 202209
  3. OPDIVO [Suspect]
     Active Substance: NIVOLUMAB
     Dates: start: 202211
  4. OPDIVO [Suspect]
     Active Substance: NIVOLUMAB
     Dosage: 8 MONTHS OS VS   29 MONTHS OS
     Dates: start: 202304, end: 202407
  5. YERVOY [Suspect]
     Active Substance: IPILIMUMAB
     Indication: Clear cell renal cell carcinoma
     Dates: start: 202206, end: 202208

REACTIONS (8)
  - Ketoacidosis [Unknown]
  - Interstitial lung disease [Unknown]
  - Rheumatoid arthritis [Unknown]
  - Headache [Unknown]
  - Visual impairment [Unknown]
  - Type 1 diabetes mellitus [Unknown]
  - Neoplasm recurrence [Unknown]
  - Radiation necrosis [Unknown]

NARRATIVE: CASE EVENT DATE: 20220901
